FAERS Safety Report 4656218-6 (Version None)
Quarter: 2005Q2

REPORT INFORMATION
  Report Type: 
  Country: None (occurrence: None)
  Receive Date: 20050509
  Receipt Date: 20050301
  Transmission Date: 20051028
  Serious: No
  Sender: FDA-Public Use
  Company Number: US-GLAXOSMITHKLINE-A0547763A

PATIENT
  Age: 60 Year
  Sex: Female

DRUGS (14)
  1. AVANDAMET [Suspect]
     Dosage: 1MG THREE TIMES PER DAY
     Route: 048
  2. AMARYL [Concomitant]
  3. QVAR 40 [Concomitant]
  4. SPIRIVA [Concomitant]
  5. SINGULAIR [Concomitant]
  6. PREMPRO [Concomitant]
  7. RANITIDINE [Concomitant]
  8. PAXIL [Concomitant]
  9. CELEBREX [Concomitant]
  10. QUININE SULPHATE [Concomitant]
  11. SYNTHROID [Concomitant]
  12. TOPROL-XL [Concomitant]
  13. LIPITOR [Concomitant]
  14. DETROL LA [Concomitant]

REACTIONS (2)
  - BLOOD GLUCOSE INCREASED [None]
  - LETHARGY [None]
